FAERS Safety Report 4776927-8 (Version None)
Quarter: 2005Q3

REPORT INFORMATION
  Report Type: 
  Country: None (occurrence: None)
  Receive Date: 20050921
  Receipt Date: 20050913
  Transmission Date: 20060218
  Serious: Yes (Death)
  Sender: FDA-Public Use
  Company Number: S05-USA-04155-01

PATIENT
  Age: 42 Year
  Sex: Female
  Weight: 72.5755 kg

DRUGS (9)
  1. LEXAPRO [Suspect]
     Indication: DEPRESSION
     Dosage: 10 MG BID PO
     Route: 048
  2. LEXAPRO [Suspect]
     Indication: PAIN
     Dosage: 10 MG BID PO
     Route: 048
  3. LEXAPRO [Suspect]
     Indication: DEPRESSION
     Dosage: 20 MG BID PO
     Route: 048
     Dates: end: 20050628
  4. LEXAPRO [Suspect]
     Indication: PAIN
     Dosage: 20 MG BID PO
     Route: 048
     Dates: end: 20050628
  5. PERCOCET [Concomitant]
  6. KLONOPIN [Concomitant]
  7. SEROQUEL [Concomitant]
  8. FIORICET [Concomitant]
  9. CALTRATE (CALCIUM CARBONATE) [Concomitant]

REACTIONS (1)
  - DRUG TOXICITY [None]
